FAERS Safety Report 5179748-X (Version None)
Quarter: 2006Q4

REPORT INFORMATION
  Report Type: 
  Country: None (occurrence: None)
  Receive Date: 20061212
  Receipt Date: 20061129
  Transmission Date: 20070319
  Serious: Yes (Other)
  Sender: FDA-Public Use
  Company Number: 2006128354

PATIENT
  Age: 29 Year
  Sex: Male

DRUGS (2)
  1. XALATAN [Suspect]
     Indication: INTRAOCULAR PRESSURE INCREASED
     Dosage: 1 IN 1 D, INTRAOCULAR
     Route: 031
     Dates: start: 20060809, end: 20060801
  2. HYALEIN (HYALURONATE SODIUM) [Concomitant]

REACTIONS (2)
  - PALPITATIONS [None]
  - POOR QUALITY SLEEP [None]
